FAERS Safety Report 18969626 (Version 2)
Quarter: 2021Q1

REPORT INFORMATION
  Report Type: Spontaneous
  Country: US (occurrence: US)
  Receive Date: 20210304
  Receipt Date: 20210309
  Transmission Date: 20210420
  Serious: Yes (Other)
  Sender: FDA-Public Use
  Company Number: US-ABBVIE-21K-163-3800503-00

PATIENT
  Sex: Female
  Weight: 48.76 kg

DRUGS (9)
  1. THORNE BIOTIN 8 [Concomitant]
     Indication: PRODUCT USED FOR UNKNOWN INDICATION
  2. ACTIVE B12 FOLATE [Concomitant]
     Indication: PRODUCT USED FOR UNKNOWN INDICATION
  3. L?LYSINE HCL [Concomitant]
     Indication: PRODUCT USED FOR UNKNOWN INDICATION
     Dosage: 500 MG
  4. IMBRUVICA [Suspect]
     Active Substance: IBRUTINIB
     Route: 048
  5. FLONASE ALLERGY RELIEF [Concomitant]
     Active Substance: FLUTICASONE PROPIONATE
     Indication: PRODUCT USED FOR UNKNOWN INDICATION
     Dosage: 50MCG?ACTUATION NASAL SPRAY?SUSPENSION
  6. MULTI MINS [Concomitant]
     Indication: PRODUCT USED FOR UNKNOWN INDICATION
  7. THORNE D?5000 [Concomitant]
     Indication: PRODUCT USED FOR UNKNOWN INDICATION
  8. IMBRUVICA [Suspect]
     Active Substance: IBRUTINIB
     Indication: CHRONIC LYMPHOCYTIC LEUKAEMIA
     Route: 065
     Dates: start: 20200406
  9. CORIOLUS PS [Concomitant]
     Indication: PRODUCT USED FOR UNKNOWN INDICATION

REACTIONS (9)
  - Tremor [Unknown]
  - Infection [Unknown]
  - Fatigue [Unknown]
  - Weight decreased [Unknown]
  - Haemorrhagic cyst [Unknown]
  - Blood pressure increased [Recovering/Resolving]
  - Decreased appetite [Unknown]
  - Upper respiratory tract infection [Unknown]
  - Headache [Recovered/Resolved]

NARRATIVE: CASE EVENT DATE: 20210121
